FAERS Safety Report 21324229 (Version 1)
Quarter: 2022Q3

REPORT INFORMATION
  Report Type: Spontaneous
  Country: US (occurrence: None)
  Receive Date: 20220911
  Receipt Date: 20220911
  Transmission Date: 20221026
  Serious: Yes (Hospitalization)
  Sender: FDA-Public Use
  Company Number: None

PATIENT
  Age: 80 Year
  Sex: Female
  Weight: 71.1 kg

DRUGS (9)
  1. METFORMIN HYDROCHLORIDE [Suspect]
     Active Substance: METFORMIN HYDROCHLORIDE
     Indication: Type 2 diabetes mellitus
     Dosage: OTHER QUANTITY : 1 TABLET(S);?FREQUENCY : TWICE A DAY;?
     Route: 048
     Dates: start: 20220801, end: 20220908
  2. METFORMIN [Concomitant]
     Active Substance: METFORMIN HYDROCHLORIDE
  3. ALOGLIPTIN [Concomitant]
     Active Substance: ALOGLIPTIN
  4. WHELCHOL [Concomitant]
  5. VESCEPTA [Concomitant]
  6. VITAMIN B6 [Concomitant]
     Active Substance: PYRIDOXINE HYDROCHLORIDE
  7. VITAMIN B12 [Concomitant]
     Active Substance: CYANOCOBALAMIN
  8. VITAMIN D3 [Concomitant]
     Active Substance: CHOLECALCIFEROL
  9. EYE VITAMIN-OCUVITE [Concomitant]

REACTIONS (3)
  - Product formulation issue [None]
  - Illness [None]
  - Lactic acidosis [None]

NARRATIVE: CASE EVENT DATE: 20220906
